FAERS Safety Report 5260782-6 (Version None)
Quarter: 2007Q1

REPORT INFORMATION
  Report Type: 
  Country: None (occurrence: None)
  Receive Date: 20070309
  Receipt Date: 20070228
  Transmission Date: 20070707
  Serious: Yes (Other)
  Sender: FDA-Public Use
  Company Number: 2006UW23668

PATIENT
  Sex: Female
  Weight: 90.9 kg

DRUGS (6)
  1. SEROQUEL [Suspect]
     Indication: BIPOLAR DISORDER
     Route: 048
     Dates: start: 20020901, end: 20030201
  2. SEROQUEL [Suspect]
     Indication: BIPOLAR I DISORDER
     Route: 048
     Dates: start: 20020901, end: 20030201
  3. ZYPREXA [Suspect]
     Dates: start: 20020901, end: 20030401
  4. SYMBYAX [Suspect]
     Dates: start: 20021101
  5. ABILIFY [Concomitant]
     Dates: start: 20060114
  6. METHADONE HYDROCHLORIDE [Concomitant]
     Dates: start: 20060220

REACTIONS (4)
  - BLINDNESS [None]
  - DIABETES MELLITUS [None]
  - DIABETIC KETOACIDOSIS [None]
  - NEUROLEPTIC MALIGNANT SYNDROME [None]
